FAERS Safety Report 10614471 (Version 1)
Quarter: 2014Q4

REPORT INFORMATION
  Report Type: Spontaneous
  Country: CN (occurrence: CN)
  Receive Date: 20141129
  Receipt Date: 20141129
  Transmission Date: 20150529
  Serious: Yes (Other)
  Sender: FDA-Public Use
  Company Number: CN-JNJFOC-20140411397

PATIENT
  Age: 35 Year
  Sex: Male
  Weight: 60 kg

DRUGS (2)
  1. QING KAI LING (TRADITIONAL CHINESE MEDICINE) [Concomitant]
     Indication: NASOPHARYNGITIS
     Route: 048
     Dates: start: 20130808, end: 20130808
  2. TYLENOL COLD [Suspect]
     Active Substance: ACETAMINOPHEN\CHLORPHENIRAMINE MALEATE\PHENYLPROPANOLAMINE
     Indication: NASOPHARYNGITIS
     Route: 048
     Dates: start: 20130808, end: 20130808

REACTIONS (2)
  - Acne [Recovering/Resolving]
  - Pruritus generalised [Recovering/Resolving]

NARRATIVE: CASE EVENT DATE: 20130808
